FAERS Safety Report 23545237 (Version 4)
Quarter: 2024Q3

REPORT INFORMATION
  Report Type: Spontaneous
  Country: GB (occurrence: GB)
  Receive Date: 20240220
  Receipt Date: 20240726
  Transmission Date: 20241016
  Serious: Yes (Other)
  Sender: MYLAN
  Company Number: GB-DEM-008405

PATIENT
  Age: 3 Decade
  Sex: Female

DRUGS (11)
  1. FENTANYL [Suspect]
     Active Substance: FENTANYL\FENTANYL CITRATE
     Indication: Epidural anaesthesia
     Dosage: 100 MICROGRAM (ROUTE: OTHER)
     Route: 065
  2. FENTANYL [Suspect]
     Active Substance: FENTANYL\FENTANYL CITRATE
     Indication: Product used for unknown indication
     Dosage: 100 MICROGRAM, UNK
     Route: 065
  3. ONDANSETRON [Suspect]
     Active Substance: ONDANSETRON
     Indication: Antiemetic supportive care
     Dosage: 4 MILLIGRAM (IN TOTAL)
     Route: 065
  4. ONDANSETRON [Suspect]
     Active Substance: ONDANSETRON
     Dosage: 4 MILLIGRAM (IN TOTAL)
     Route: 042
  5. CARBOPROST [Suspect]
     Active Substance: CARBOPROST
     Indication: Uterine disorder
     Dosage: 250 MICROGRAM
     Route: 065
  6. LEVOBUPIVACAINE [Suspect]
     Active Substance: LEVOBUPIVACAINE
     Indication: Epidural anaesthesia
     Dosage: 20 ML OF 0.5% LEVOBUPIVACAINE
     Route: 065
  7. LEVOBUPIVACAINE [Suspect]
     Active Substance: LEVOBUPIVACAINE
     Indication: Product used for unknown indication
     Dosage: 10 ML OF 0.5% LEVOBUPIVACAINE
     Route: 065
  8. ERGONOVINE\OXYTOCIN [Suspect]
     Active Substance: ERGONOVINE\OXYTOCIN
     Indication: Product used for unknown indication
     Dosage: 5 IU/500 MCG STAT DOSE
     Route: 065
  9. MISOPROSTOL [Suspect]
     Active Substance: MISOPROSTOL
     Indication: Product used for unknown indication
     Dosage: 1000 MCG PER RECTUM
     Route: 065
  10. CEFUROXIME [Concomitant]
     Active Substance: CEFUROXIME
     Indication: Antibiotic prophylaxis
     Dosage: 1.5 GRAM
     Route: 065
  11. METRONIDAZOLE [Concomitant]
     Active Substance: METRONIDAZOLE
     Indication: Antibiotic prophylaxis
     Dosage: 500 MILLIGRAM
     Route: 065

REACTIONS (2)
  - Dyskinesia [Recovered/Resolved]
  - Maternal exposure during pregnancy [Unknown]
